FAERS Safety Report 8472998-6 (Version None)
Quarter: 2012Q2

REPORT INFORMATION
  Report Type: 
  Country: None (occurrence: None)
  Receive Date: 20120627
  Receipt Date: 20120622
  Transmission Date: 20120825
  Serious: Yes (Death)
  Sender: FDA-Public Use
  Company Number: GB-ABBOTT-12P-167-0948615-00

PATIENT
  Age: 40 Year
  Sex: Male

DRUGS (9)
  1. CLARITHROMYCIN [Suspect]
     Indication: UPPER RESPIRATORY TRACT INFECTION
     Route: 048
     Dates: start: 20111028
  2. METHADONE HCL [Interacting]
     Indication: PAIN MANAGEMENT
     Route: 048
     Dates: start: 20111025
  3. LANSOPRAZOLE [Concomitant]
     Indication: GASTRITIS
     Route: 048
     Dates: start: 20111019
  4. HUMIRA [Concomitant]
     Indication: CROHN'S DISEASE
     Route: 030
     Dates: start: 20111005
  5. ORAMORPH SR [Concomitant]
     Indication: PAIN
     Route: 048
     Dates: start: 20110707, end: 20111025
  6. DIAZEPAM [Concomitant]
     Indication: ANXIETY
     Route: 048
     Dates: start: 20111019
  7. ADCAL-D3 [Concomitant]
     Indication: CROHN'S DISEASE
     Route: 048
     Dates: start: 20110808
  8. MULTI-VITAMIN [Concomitant]
     Indication: PRODUCT USED FOR UNKNOWN INDICATION
     Dosage: ADDITIONAL INFO: VITAMIN BPC
  9. VENTOLIN [Concomitant]
     Indication: PRODUCT USED FOR UNKNOWN INDICATION

REACTIONS (2)
  - METABOLIC DISORDER [None]
  - DRUG INTERACTION [None]
